FAERS Safety Report 6026522-8 (Version None)
Quarter: 2009Q1

REPORT INFORMATION
  Report Type: 
  Country: None (occurrence: None)
  Receive Date: 20090102
  Receipt Date: 20081223
  Transmission Date: 20090719
  Serious: Yes (Hospitalization)
  Sender: FDA-Public Use
  Company Number: IN-ELI_LILLY_AND_COMPANY-IN200811006160

PATIENT
  Age: 78 Year
  Sex: Male

DRUGS (2)
  1. HUMINSULIN 30% REGULAR, 70% NPH [Suspect]
     Indication: DIABETES MELLITUS
     Dosage: 10 IU, EACH MORNING
     Route: 058
     Dates: start: 20080922
  2. HUMINSULIN 30% REGULAR, 70% NPH [Suspect]
     Dosage: 16 IU, EACH EVENING
     Route: 058
     Dates: start: 20080922

REACTIONS (2)
  - CARDIAC PACEMAKER INSERTION [None]
  - DIABETES MELLITUS INADEQUATE CONTROL [None]
